FAERS Safety Report 23146500 (Version 1)
Quarter: 2023Q4

REPORT INFORMATION
  Report Type: Spontaneous
  Country: US (occurrence: US)
  Receive Date: 20231105
  Receipt Date: 20231105
  Transmission Date: 20240110
  Serious: No
  Sender: FDA-Public Use
  Company Number: US-JNJFOC-20231077689

PATIENT
  Age: 12 Year
  Sex: Female

DRUGS (14)
  1. TYLENOL [Suspect]
     Active Substance: ACETAMINOPHEN
     Indication: Catheter site rash
     Route: 065
     Dates: start: 20230913
  2. TYLENOL [Suspect]
     Active Substance: ACETAMINOPHEN
     Indication: Catheter site erythema
  3. TYLENOL [Suspect]
     Active Substance: ACETAMINOPHEN
     Indication: Catheter site warmth
  4. TYLENOL [Suspect]
     Active Substance: ACETAMINOPHEN
     Indication: Catheter site pain
  5. TYLENOL [Suspect]
     Active Substance: ACETAMINOPHEN
     Indication: Rash macular
  6. TYLENOL [Suspect]
     Active Substance: ACETAMINOPHEN
     Indication: Burning sensation
  7. FABRAZYME [Concomitant]
     Active Substance: AGALSIDASE BETA
     Indication: Fabry^s disease
     Dosage: 30 (DOSE UNIT PROVIDED)
     Route: 042
     Dates: start: 20190221
  8. FABRAZYME [Concomitant]
     Active Substance: AGALSIDASE BETA
     Route: 042
     Dates: start: 20230913
  9. BENADRYL [Concomitant]
     Active Substance: DIPHENHYDRAMINE HYDROCHLORIDE
     Indication: Rash macular
     Route: 065
     Dates: start: 20230913
  10. BENADRYL [Concomitant]
     Active Substance: DIPHENHYDRAMINE HYDROCHLORIDE
     Indication: Catheter site rash
  11. BENADRYL [Concomitant]
     Active Substance: DIPHENHYDRAMINE HYDROCHLORIDE
     Indication: Catheter site erythema
  12. BENADRYL [Concomitant]
     Active Substance: DIPHENHYDRAMINE HYDROCHLORIDE
     Indication: Catheter site pain
  13. BENADRYL [Concomitant]
     Active Substance: DIPHENHYDRAMINE HYDROCHLORIDE
     Indication: Catheter site warmth
  14. BENADRYL [Concomitant]
     Active Substance: DIPHENHYDRAMINE HYDROCHLORIDE
     Indication: Burning sensation

REACTIONS (2)
  - Off label use [Unknown]
  - Therapeutic response unexpected [Unknown]

NARRATIVE: CASE EVENT DATE: 20230913
